FAERS Safety Report 6206609-7 (Version None)
Quarter: 2009Q2

REPORT INFORMATION
  Report Type: 
  Country: None (occurrence: None)
  Receive Date: 20090527
  Receipt Date: 20090527
  Transmission Date: 20091009
  Serious: Yes (Death)
  Sender: FDA-Public Use
  Company Number: None

PATIENT
  Sex: Female
  Weight: 45.3597 kg

DRUGS (3)
  1. AVASTIN [Suspect]
     Indication: METASTASES TO LIVER
     Dosage: 2 TREATMENTS IV DRIP
     Route: 041
     Dates: start: 20090413, end: 20090511
  2. AVASTIN [Suspect]
     Indication: METASTASES TO LUNG
     Dosage: 2 TREATMENTS IV DRIP
     Route: 041
     Dates: start: 20090413, end: 20090511
  3. AVASTIN [Suspect]
     Indication: RECTAL CANCER
     Dosage: 2 TREATMENTS IV DRIP
     Route: 041
     Dates: start: 20090413, end: 20090511

REACTIONS (10)
  - ASTHENIA [None]
  - CONFUSIONAL STATE [None]
  - COUGH [None]
  - DEHYDRATION [None]
  - DELIRIUM [None]
  - GENERAL PHYSICAL HEALTH DETERIORATION [None]
  - HAEMOPTYSIS [None]
  - PULMONARY HAEMORRHAGE [None]
  - UNRESPONSIVE TO STIMULI [None]
  - WEIGHT DECREASED [None]
